FAERS Safety Report 13445203 (Version 1)
Quarter: 2017Q2

REPORT INFORMATION
  Report Type: Report from Study
  Country: US (occurrence: US)
  Receive Date: 20170414
  Receipt Date: 20170414
  Transmission Date: 20170830
  Serious: Yes (Death, Hospitalization)
  Sender: FDA-Public Use
  Company Number: US-ACTELION-A-US2013-80171

PATIENT
  Age: 58 Year
  Sex: Female

DRUGS (5)
  1. TRACLEER [Suspect]
     Active Substance: BOSENTAN
     Dosage: 125 MG, BID
     Route: 048
  2. BENAZEPRIL [Concomitant]
     Active Substance: BENAZEPRIL HYDROCHLORIDE
  3. TRACLEER [Suspect]
     Active Substance: BOSENTAN
     Indication: PULMONARY ARTERIAL HYPERTENSION
     Dosage: 125 MG, BID
     Route: 048
     Dates: start: 20100716
  4. METOLAZONE. [Concomitant]
     Active Substance: METOLAZONE
  5. AVONEX [Concomitant]
     Active Substance: INTERFERON BETA-1A
     Dosage: 30 MCG, Q1WEEK
     Route: 030
     Dates: start: 20050111

REACTIONS (10)
  - Death [Fatal]
  - Sinusitis [Not Recovered/Not Resolved]
  - Blood pressure decreased [Unknown]
  - Epistaxis [Not Recovered/Not Resolved]
  - Upper respiratory tract infection [Recovering/Resolving]
  - Sinus operation [Recovered/Resolved]
  - Dyspnoea [Not Recovered/Not Resolved]
  - Chronic sinusitis [Recovering/Resolving]
  - Bronchitis [Recovering/Resolving]
  - Asthenia [Unknown]

NARRATIVE: CASE EVENT DATE: 20130228
